FAERS Safety Report 6091793-9 (Version None)
Quarter: 2009Q1

REPORT INFORMATION
  Report Type: 
  Country: None (occurrence: None)
  Receive Date: 20090225
  Receipt Date: 20080626
  Transmission Date: 20090719
  Serious: No
  Sender: FDA-Public Use
  Company Number: A0734985A

PATIENT
  Sex: Female

DRUGS (4)
  1. VALTREX [Suspect]
     Dosage: 1G PER DAY
     Route: 048
     Dates: start: 20080624
  2. ZOLOFT [Concomitant]
  3. VITAMINS [Concomitant]
  4. ENZYMES [Concomitant]

REACTIONS (2)
  - LOCAL SWELLING [None]
  - PAIN [None]
